FAERS Safety Report 14227491 (Version 2)
Quarter: 2018Q1

REPORT INFORMATION
  Report Type: Report from Study
  Country: US (occurrence: US)
  Receive Date: 20171127
  Receipt Date: 20180102
  Transmission Date: 20180508
  Serious: Yes (Other)
  Sender: FDA-Public Use
  Company Number: US-BAUSCH-BL-2017-032189

PATIENT
  Age: 40 Year
  Sex: Female
  Weight: 99.88 kg

DRUGS (2)
  1. XENAZINE [Suspect]
     Active Substance: TETRABENAZINE
     Indication: TOURETTE^S DISORDER
     Dosage: FIRST WEEK
     Route: 048
     Dates: start: 20171110, end: 20171117
  2. XENAZINE [Suspect]
     Active Substance: TETRABENAZINE
     Dosage: DURING SECOND WEEK
     Route: 048
     Dates: start: 201711, end: 201712

REACTIONS (4)
  - Off label use [Recovered/Resolved]
  - Dizziness [Recovered/Resolved]
  - Loss of consciousness [Recovered/Resolved]
  - Blood pressure decreased [Recovered/Resolved]

NARRATIVE: CASE EVENT DATE: 201711
